FAERS Safety Report 5464798-6 (Version None)
Quarter: 2007Q3

REPORT INFORMATION
  Report Type: 
  Country: None (occurrence: None)
  Receive Date: 20070820
  Receipt Date: 20070423
  Transmission Date: 20080115
  Serious: No
  Sender: FDA-Public Use
  Company Number: TPA2007A00873

PATIENT
  Age: 59 Year
  Sex: Male
  Weight: 96.1626 kg

DRUGS (15)
  1. ROZEREM [Suspect]
     Indication: INSOMNIA
     Dosage: 8 MG, QHS, PER ORAL
     Route: 048
     Dates: start: 20070413
  2. ACTOS [Suspect]
     Indication: BLOOD GLUCOSE INCREASED
     Dosage: 15 MG, 1 IN 1 D, PER ORAL
     Route: 048
     Dates: start: 20050423
  3. IBUPROFEN [Concomitant]
  4. ABILIFY [Concomitant]
  5. PROVIGIL [Concomitant]
  6. LIPITOR [Concomitant]
  7. CYMBALTA [Concomitant]
  8. CHANTIX [Concomitant]
  9. ENABLEX (ALL OTHER THERAPEUTIC PRODUCTS) [Concomitant]
  10. XENICAL [Concomitant]
  11. QUINAPRIL HCL [Concomitant]
  12. BUSPAR [Concomitant]
  13. ZOLOFT [Concomitant]
  14. RESTORIL [Concomitant]
  15. ATIVAN [Concomitant]

REACTIONS (3)
  - FATIGUE [None]
  - HEADACHE [None]
  - STOMACH DISCOMFORT [None]
